FAERS Safety Report 24789237 (Version 1)
Quarter: 2024Q4

REPORT INFORMATION
  Report Type: Spontaneous
  Country: DE (occurrence: DE)
  Receive Date: 20241230
  Receipt Date: 20241230
  Transmission Date: 20250115
  Serious: Yes (Death, Life-Threatening, Hospitalization, Other)
  Sender: PFIZER
  Company Number: DE-PFIZER INC-PV202400168422

PATIENT
  Age: 7 Decade
  Sex: Male

DRUGS (6)
  1. CLINDAMYCIN HYDROCHLORIDE [Suspect]
     Active Substance: CLINDAMYCIN HYDROCHLORIDE
     Indication: Necrotising fasciitis
     Dosage: 900 MG
  2. CLINDAMYCIN HYDROCHLORIDE [Suspect]
     Active Substance: CLINDAMYCIN HYDROCHLORIDE
     Indication: Klebsiella infection
  3. MEROPENEM [Suspect]
     Active Substance: MEROPENEM
     Indication: Necrotising fasciitis
     Dosage: 1 G
  4. MEROPENEM [Suspect]
     Active Substance: MEROPENEM
     Indication: Klebsiella infection
  5. TAZOBACTAM [Suspect]
     Active Substance: TAZOBACTAM
     Indication: Necrotising fasciitis
     Dosage: 9 G
     Route: 042
  6. TAZOBACTAM [Suspect]
     Active Substance: TAZOBACTAM
     Indication: Klebsiella infection

REACTIONS (1)
  - Drug ineffective [Fatal]
